FAERS Safety Report 10966871 (Version 1)
Quarter: 2015Q1

REPORT INFORMATION
  Report Type: Spontaneous
  Country: US (occurrence: US)
  Receive Date: 20150330
  Receipt Date: 20150330
  Transmission Date: 20150721
  Serious: Yes (Hospitalization, Other)
  Sender: FDA-Public Use
  Company Number: US-TEVA-520413USA

PATIENT
  Age: 59 Year
  Sex: Female

DRUGS (3)
  1. CELEBREX [Concomitant]
     Active Substance: CELECOXIB
  2. WARFARIN [Suspect]
     Active Substance: WARFARIN
     Route: 065
  3. VICODIN [Concomitant]
     Active Substance: ACETAMINOPHEN\HYDROCODONE BITARTRATE

REACTIONS (6)
  - Intervertebral disc protrusion [Unknown]
  - Epistaxis [Unknown]
  - Haemorrhage [Unknown]
  - Adverse event [Unknown]
  - Dehydration [Unknown]
  - Sinusitis [Unknown]
